FAERS Safety Report 5601570-8 (Version None)
Quarter: 2008Q1

REPORT INFORMATION
  Report Type: 
  Country: None (occurrence: None)
  Receive Date: 20080124
  Receipt Date: 20080117
  Transmission Date: 20080703
  Serious: Yes (Hospitalization)
  Sender: FDA-Public Use
  Company Number: GR-ABBOTT-08P-066-0433839-00

PATIENT
  Age: 79 Year
  Sex: Female
  Weight: 62 kg

DRUGS (9)
  1. ZEMPLAR [Suspect]
     Indication: HYPERPARATHYROIDISM SECONDARY
     Route: 042
     Dates: start: 20070303
  2. ERYTHROPOIETIN HUMAN [Concomitant]
     Indication: RENAL FAILURE CHRONIC
  3. SACCHARATED IRON OXIDE [Concomitant]
     Indication: RENAL FAILURE CHRONIC
  4. INTELECTA [Concomitant]
     Indication: DRUG USE FOR UNKNOWN INDICATION
  5. FOLIC ACID [Concomitant]
     Indication: DRUG USE FOR UNKNOWN INDICATION
  6. FORSENOL 750 [Concomitant]
     Indication: DRUG USE FOR UNKNOWN INDICATION
  7. ALUCAP [Concomitant]
     Indication: DRUG USE FOR UNKNOWN INDICATION
  8. SINTROM 40 [Concomitant]
     Indication: DRUG USE FOR UNKNOWN INDICATION
  9. VERAPAMIL HYDROCHLORIDE [Concomitant]
     Indication: ATRIAL FIBRILLATION

REACTIONS (1)
  - HIP FRACTURE [None]
